FAERS Safety Report 7411032-3 (Version None)
Quarter: 2011Q2

REPORT INFORMATION
  Report Type: 
  Country: None (occurrence: None)
  Receive Date: 20110413
  Receipt Date: 20110331
  Transmission Date: 20111010
  Serious: No
  Sender: FDA-Public Use
  Company Number: US-JNJFOC-20110309402

PATIENT
  Sex: Female
  Weight: 53.98 kg

DRUGS (3)
  1. DURAGESIC [Suspect]
     Route: 062
  2. DURAGESIC [Suspect]
     Indication: INTERVERTEBRAL DISC DEGENERATION
     Route: 062
  3. NORCO [Concomitant]
     Indication: PAIN
     Route: 048

REACTIONS (1)
  - EXPIRED DRUG ADMINISTERED [None]
